FAERS Safety Report 6841588-0 (Version None)
Quarter: 2010Q3

REPORT INFORMATION
  Report Type: 
  Country: None (occurrence: None)
  Receive Date: 20100714
  Receipt Date: 20070709
  Transmission Date: 20110219
  Serious: No
  Sender: FDA-Public Use
  Company Number: US-PFIZER INC-2007057280

PATIENT
  Sex: Male
  Weight: 74.8 kg

DRUGS (2)
  1. CHANTIX [Suspect]
     Indication: SMOKING CESSATION THERAPY
     Route: 048
     Dates: start: 20070625, end: 20070705
  2. CELEXA [Concomitant]

REACTIONS (1)
  - FEELING ABNORMAL [None]
